FAERS Safety Report 18530101 (Version 1)
Quarter: 2020Q4

REPORT INFORMATION
  Report Type: Spontaneous
  Country: CN (occurrence: CN)
  Receive Date: 20201120
  Receipt Date: 20201120
  Transmission Date: 20210114
  Serious: Yes (Other)
  Sender: FDA-Public Use
  Company Number: CN-ASTRAZENECA-2020SF52689

PATIENT
  Age: 23473 Day
  Sex: Male
  Weight: 88 kg

DRUGS (1)
  1. ROSUVASTATIN. [Suspect]
     Active Substance: ROSUVASTATIN
     Indication: LIPIDS INCREASED
     Route: 048
     Dates: start: 20201018, end: 20201025

REACTIONS (3)
  - Alanine aminotransferase increased [Recovered/Resolved]
  - Liver injury [Recovering/Resolving]
  - Aspartate aminotransferase increased [Recovered/Resolved]

NARRATIVE: CASE EVENT DATE: 20201023
